FAERS Safety Report 7964512-6 (Version None)
Quarter: 2011Q4

REPORT INFORMATION
  Report Type: 
  Country: None (occurrence: None)
  Receive Date: 20111206
  Receipt Date: 20111124
  Transmission Date: 20120403
  Serious: Yes (Other)
  Sender: FDA-Public Use
  Company Number: JP-2011-11801

PATIENT
  Age: 89 Year
  Sex: Male

DRUGS (13)
  1. LIPITOR [Concomitant]
  2. ASPIRIN [Concomitant]
  3. FENTANYL [Concomitant]
  4. LASIX [Concomitant]
  5. SAMSCA [Suspect]
     Indication: FLUID RETENTION
     Dosage: 15 MG MILLIGRAM(S), QAM, ORAL
     Route: 048
     Dates: start: 20111018, end: 20111019
  6. SELBEX (TEPRENONE) [Concomitant]
  7. LANSOPRAZOLE [Concomitant]
  8. LASIX [Concomitant]
  9. PLAVIX [Concomitant]
  10. HEPARIN AND PREPARATIONS (HEPARIN AND PREPARATIONS) INJECTION [Concomitant]
  11. ITOROL (ISOSORBIDE MONONITRATE) TABLET [Concomitant]
  12. HANP (CARPERITIDE) [Concomitant]
  13. SOLITA-T1 (GLUCOSE, SODIUM CHLORIDE, SODIUM LACTATE) INJECTION [Concomitant]

REACTIONS (2)
  - FLUID RETENTION [None]
  - HYPERNATRAEMIA [None]
